FAERS Safety Report 25106423 (Version 2)
Quarter: 2025Q1

REPORT INFORMATION
  Report Type: Spontaneous
  Country: CH (occurrence: CH)
  Receive Date: 20250321
  Receipt Date: 20250325
  Transmission Date: 20250408
  Serious: Yes (Life-Threatening, Other)
  Sender: MYLAN
  Company Number: None

PATIENT
  Age: 45 Year
  Sex: Female
  Weight: 69 kg

DRUGS (7)
  1. ARIXTRA [Suspect]
     Active Substance: FONDAPARINUX SODIUM
     Indication: Thrombosis prophylaxis
     Dosage: 2.5 MILLIGRAM, QD (PER DAY)
     Dates: start: 20250201, end: 20250203
  2. PIPERACILLIN SODIUM\TAZOBACTAM SODIUM [Suspect]
     Active Substance: PIPERACILLIN SODIUM\TAZOBACTAM SODIUM
     Indication: Sepsis
     Dosage: 4500 MILLIGRAM, TID (EVERY 8 HOURS)
     Dates: start: 20250131, end: 20250206
  3. NOVALGIN (METAMIZOLE SODIUM) [Suspect]
     Active Substance: METAMIZOLE SODIUM
     Indication: Abdominal pain
     Dates: start: 20250131, end: 20250131
  4. NOVALGIN (METAMIZOLE SODIUM) [Suspect]
     Active Substance: METAMIZOLE SODIUM
     Indication: Abdominal pain
     Dosage: 500 MILLIGRAM, BID (EVERY 12 HOURS)
     Dates: start: 20250201, end: 20250201
  5. CLEMASTINE FUMARATE [Suspect]
     Active Substance: CLEMASTINE FUMARATE
     Indication: Premedication
     Dates: start: 20250201, end: 20250201
  6. SOLU-MEDROL [Suspect]
     Active Substance: METHYLPREDNISOLONE SODIUM SUCCINATE
     Indication: Premedication
     Dates: start: 20250201, end: 20250201
  7. IOBITRIDOL [Suspect]
     Active Substance: IOBITRIDOL
     Indication: Scan with contrast
     Dates: start: 20250201, end: 20250201

REACTIONS (1)
  - Agranulocytosis [Recovered/Resolved]

NARRATIVE: CASE EVENT DATE: 20250202
